FAERS Safety Report 12781845 (Version 1)
Quarter: 2016Q3

REPORT INFORMATION
  Report Type: Report from Study
  Country: DE (occurrence: DE)
  Receive Date: 20160926
  Receipt Date: 20160926
  Transmission Date: 20161109
  Serious: Yes (Hospitalization, Other)
  Sender: FDA-Public Use
  Company Number: US-ASTRAZENECA-2016SF02067

PATIENT
  Sex: Female
  Weight: .7 kg

DRUGS (4)
  1. SYNAGIS [Suspect]
     Active Substance: PALIVIZUMAB
     Indication: PREMATURE BABY
     Dosage: 35 MG
     Route: 030
     Dates: start: 20110217, end: 20110217
  2. SYNAGIS [Suspect]
     Active Substance: PALIVIZUMAB
     Indication: PREMATURE BABY
     Dosage: 35 MG
     Route: 030
     Dates: start: 20101228, end: 20101228
  3. SYNAGIS [Suspect]
     Active Substance: PALIVIZUMAB
     Indication: PREMATURE BABY
     Dosage: 35 MG
     Route: 030
     Dates: start: 20110125, end: 20110125
  4. SYNAGIS [Suspect]
     Active Substance: PALIVIZUMAB
     Indication: PREMATURE BABY
     Dosage: 35 MG
     Route: 030
     Dates: start: 20110317, end: 20110317

REACTIONS (4)
  - Bronchitis [Unknown]
  - Respiratory syncytial virus test positive [Unknown]
  - Pneumonia [Unknown]
  - Bronchiolitis [Unknown]
